FAERS Safety Report 7371730-7 (Version None)
Quarter: 2011Q1

REPORT INFORMATION
  Report Type: 
  Country: None (occurrence: None)
  Receive Date: 20110324
  Receipt Date: 20110313
  Transmission Date: 20110831
  Serious: Yes (Death)
  Sender: FDA-Public Use
  Company Number: US-ENDO PHARMACEUTICALS INC.-OPER20100185

PATIENT
  Age: 20 Year
  Sex: Male

DRUGS (2)
  1. OPANA ER [Suspect]
     Indication: ARTHRALGIA
     Dosage: 30 MG
  2. XANAX [Suspect]
     Dosage: UNK

REACTIONS (3)
  - DEATH [None]
  - OVERDOSE [None]
  - DRUG ABUSE [None]
